FAERS Safety Report 7810504-7 (Version None)
Quarter: 2011Q4

REPORT INFORMATION
  Report Type: 
  Country: None (occurrence: None)
  Receive Date: 20111012
  Receipt Date: 20111011
  Transmission Date: 20120403
  Serious: Yes (Death, Hospitalization, Other)
  Sender: FDA-Public Use
  Company Number: US-BRISTOL-MYERS SQUIBB COMPANY-16077539

PATIENT
  Age: 68 Year
  Sex: Male

DRUGS (8)
  1. PACERONE [Concomitant]
  2. VITAMIN E [Concomitant]
  3. YERVOY [Suspect]
     Indication: METASTATIC MALIGNANT MELANOMA
     Dosage: 200MG/40ML 917824 30APR14 50MG/ML 917821 EXP: 31JAN14
     Route: 042
     Dates: start: 20110825
  4. PRAVASTATIN SODIUM [Concomitant]
  5. COUMADIN [Concomitant]
     Indication: ATRIAL FIBRILLATION
  6. DEXAMETHASONE [Concomitant]
  7. FISH OIL [Concomitant]
  8. ASCORBIC ACID [Concomitant]

REACTIONS (5)
  - DIZZINESS [None]
  - LACERATION [None]
  - CEREBRAL HAEMORRHAGE [None]
  - NAUSEA [None]
  - FALL [None]
